FAERS Safety Report 21362936 (Version 2)
Quarter: 2023Q2

REPORT INFORMATION
  Report Type: Spontaneous
  Country: JP (occurrence: JP)
  Receive Date: 20220922
  Receipt Date: 20230612
  Transmission Date: 20230722
  Serious: Yes (Other)
  Sender: FDA-Public Use
  Company Number: JP-ADVANZ PHARMA-202209005817

PATIENT

DRUGS (25)
  1. HYDROXYCHLOROQUINE SULFATE [Suspect]
     Active Substance: HYDROXYCHLOROQUINE SULFATE
     Indication: Systemic lupus erythematosus
     Dosage: 200 MG, QD
     Route: 048
     Dates: start: 2015, end: 2016
  2. HYDROXYCHLOROQUINE SULFATE [Suspect]
     Active Substance: HYDROXYCHLOROQUINE SULFATE
     Dosage: 200 MG, QOD
     Route: 048
     Dates: start: 2016
  3. HYDROXYCHLOROQUINE SULFATE [Suspect]
     Active Substance: HYDROXYCHLOROQUINE SULFATE
     Dosage: 200 MG EVERY 3 DAYS
     Route: 048
     Dates: end: 2022
  4. PREDNISOLONE [Concomitant]
     Active Substance: PREDNISOLONE
     Indication: Systemic lupus erythematosus
     Dosage: UNK
     Dates: start: 2014, end: 2016
  5. PREDNISOLONE [Concomitant]
     Active Substance: PREDNISOLONE
     Dosage: 10 MG, TAPERED DOSE
     Dates: start: 2015, end: 2016
  6. PREDNISOLONE [Concomitant]
     Active Substance: PREDNISOLONE
     Dosage: 10 MG
     Dates: start: 2016, end: 2016
  7. PREDNISOLONE [Concomitant]
     Active Substance: PREDNISOLONE
     Dosage: 25 MG
     Dates: start: 2016, end: 2016
  8. PREDNISOLONE [Concomitant]
     Active Substance: PREDNISOLONE
     Dosage: UNK
     Dates: start: 2016, end: 2016
  9. PREDNISOLONE [Concomitant]
     Active Substance: PREDNISOLONE
     Dosage: 11 MG
     Dates: start: 2016, end: 2016
  10. PREDNISOLONE [Concomitant]
     Active Substance: PREDNISOLONE
     Dosage: UNK
     Dates: start: 2016, end: 2017
  11. PREDNISOLONE [Concomitant]
     Active Substance: PREDNISOLONE
     Dosage: 8 MG
     Dates: start: 2017, end: 2017
  12. PREDNISOLONE [Concomitant]
     Active Substance: PREDNISOLONE
     Dosage: 11 MG
     Dates: start: 2017, end: 2017
  13. PREDNISOLONE [Concomitant]
     Active Substance: PREDNISOLONE
     Dosage: 13 MG
     Dates: start: 2017, end: 2018
  14. PREDNISOLONE [Concomitant]
     Active Substance: PREDNISOLONE
     Dosage: UNK
     Dates: start: 2018, end: 2020
  15. PREDNISOLONE [Concomitant]
     Active Substance: PREDNISOLONE
     Dosage: 5 MG
     Dates: start: 2020, end: 2021
  16. PREDNISOLONE [Concomitant]
     Active Substance: PREDNISOLONE
     Dosage: 7 MG
     Dates: start: 2021, end: 2021
  17. PREDNISOLONE [Concomitant]
     Active Substance: PREDNISOLONE
     Dosage: 6 MG
     Dates: start: 2021, end: 2021
  18. PREDNISOLONE [Concomitant]
     Active Substance: PREDNISOLONE
     Dosage: 5 MG
     Dates: start: 2021
  19. PREDNISOLONE [Concomitant]
     Active Substance: PREDNISOLONE
     Dosage: 50 MG
     Dates: start: 2014, end: 2014
  20. TACROLIMUS [Concomitant]
     Active Substance: TACROLIMUS
     Indication: Systemic lupus erythematosus
     Dosage: 1 MG
     Dates: start: 2014, end: 2016
  21. TACROLIMUS [Concomitant]
     Active Substance: TACROLIMUS
     Dosage: 2 MG
     Dates: start: 2016, end: 2018
  22. TACROLIMUS [Concomitant]
     Active Substance: TACROLIMUS
     Dosage: 3 MG
     Dates: start: 2018
  23. TACROLIMUS [Concomitant]
     Active Substance: TACROLIMUS
     Dosage: UNK
  24. MIZORIBINE [Concomitant]
     Active Substance: MIZORIBINE
     Indication: Systemic lupus erythematosus
     Dosage: 150 MG
     Dates: start: 2016, end: 2021
  25. MIZORIBINE [Concomitant]
     Active Substance: MIZORIBINE
     Dosage: 150 MG
     Dates: start: 2021

REACTIONS (16)
  - Gastrointestinal oedema [Unknown]
  - Altered state of consciousness [Unknown]
  - Upper respiratory tract inflammation [Unknown]
  - Arthralgia [Unknown]
  - Complement factor C3 decreased [Unknown]
  - Complement factor C4 decreased [Unknown]
  - Pleural effusion [Unknown]
  - Double stranded DNA antibody positive [Unknown]
  - DNA antibody positive [Unknown]
  - Oropharyngeal pain [Unknown]
  - Pyrexia [Unknown]
  - Diarrhoea [Recovering/Resolving]
  - Abdominal pain upper [Unknown]
  - Urticaria [Unknown]
  - Rash [Unknown]
  - Inappropriate schedule of product administration [Unknown]

NARRATIVE: CASE EVENT DATE: 20160101
